FAERS Safety Report 9288350 (Version 4)
Quarter: 2013Q3

REPORT INFORMATION
  Report Type: Spontaneous
  Country: ZA (occurrence: ZA)
  Receive Date: 20130514
  Receipt Date: 20130801
  Transmission Date: 20140515
  Serious: Yes (Other)
  Sender: FDA-Public Use
  Company Number: ZA-ASTRAZENECA-2013SE26532

PATIENT
  Age: 71 Year
  Sex: Male

DRUGS (8)
  1. CRESTOR [Suspect]
     Indication: BLOOD CHOLESTEROL ABNORMAL
     Dosage: TAKING CRESTOR FOR YEARS
     Route: 048
     Dates: end: 201304
  2. CRESTOR [Suspect]
     Indication: BLOOD CHOLESTEROL ABNORMAL
     Route: 048
     Dates: start: 201304, end: 201305
  3. CRESTOR [Suspect]
     Indication: BLOOD CHOLESTEROL ABNORMAL
     Route: 048
     Dates: start: 201305
  4. CRESTOR [Suspect]
     Indication: BLOOD CHOLESTEROL ABNORMAL
     Route: 048
  5. GLUCOPHAGE [Concomitant]
     Route: 048
  6. NEXIAM [Concomitant]
     Route: 048
  7. ASPIRIN CARDIO [Concomitant]
     Route: 048
  8. VOLTAREN [Concomitant]

REACTIONS (5)
  - Prostatomegaly [Recovered/Resolved]
  - Renal injury [Not Recovered/Not Resolved]
  - Blood urea increased [Unknown]
  - Blood creatine increased [Not Recovered/Not Resolved]
  - Glomerular filtration rate decreased [Unknown]
